FAERS Safety Report 7107712-X (Version None)
Quarter: 2010Q4

REPORT INFORMATION
  Report Type: 
  Country: None (occurrence: None)
  Receive Date: 20101117
  Receipt Date: 20101112
  Transmission Date: 20110411
  Serious: Yes (Hospitalization, Other)
  Sender: FDA-Public Use
  Company Number: US-BRISTOL-MYERS SQUIBB COMPANY-15346687

PATIENT
  Age: 64 Year
  Sex: Female
  Weight: 169 kg

DRUGS (11)
  1. CARBOPLATIN [Suspect]
     Indication: NON-SMALL CELL LUNG CANCER
     Dosage: 30SEP10 DOSE:713MG,LAST DOSE 6DF:6AUC
     Route: 042
     Dates: start: 20100721
  2. PEMETREXED DISODIUM [Suspect]
     Indication: NON-SMALL CELL LUNG CANCER
     Dosage: 30SEP10 DOSE:514MG,LAST DOSE VIAL
     Route: 042
     Dates: start: 20100721
  3. AMLODIPINE [Concomitant]
  4. MIRAPEX [Concomitant]
  5. FOLIC ACID [Concomitant]
  6. METAMUCIL-2 [Concomitant]
  7. COLACE [Concomitant]
  8. AVAPRO [Concomitant]
  9. SENOKOT [Concomitant]
  10. ZOLOFT [Concomitant]
  11. VITAMIN B-12 [Concomitant]
     Dates: start: 20100719

REACTIONS (4)
  - CONSTIPATION [None]
  - DEHYDRATION [None]
  - PYREXIA [None]
  - SYNCOPE [None]
